FAERS Safety Report 13456419 (Version 1)
Quarter: 2017Q2

REPORT INFORMATION
  Report Type: Spontaneous
  Country: US (occurrence: US)
  Receive Date: 20170419
  Receipt Date: 20170419
  Transmission Date: 20170830
  Serious: No
  Sender: FDA-Public Use
  Company Number: US-ELI_LILLY_AND_COMPANY-US201704005341

PATIENT
  Sex: Male

DRUGS (4)
  1. HUMULIN R U-500 [Suspect]
     Active Substance: INSULIN HUMAN
     Dosage: 100 U, EACH MORNING
     Route: 058
  2. HUMULIN R U-500 [Suspect]
     Active Substance: INSULIN HUMAN
     Indication: TYPE 2 DIABETES MELLITUS
     Dosage: 130 U, EACH MORNING
     Route: 065
     Dates: start: 201610
  3. HUMULIN R U-500 [Suspect]
     Active Substance: INSULIN HUMAN
     Dosage: 120 U, EACH EVENING
     Route: 065
     Dates: start: 201610
  4. HUMULIN R U-500 [Suspect]
     Active Substance: INSULIN HUMAN
     Dosage: 120 U, EACH EVENING
     Route: 058

REACTIONS (3)
  - Blood glucose decreased [Recovered/Resolved]
  - Underdose [Recovered/Resolved]
  - Blood glucose increased [Recovered/Resolved]
